FAERS Safety Report 10653520 (Version 1)
Quarter: 2014Q4

REPORT INFORMATION
  Report Type: Spontaneous
  Country: US (occurrence: US)
  Receive Date: 20141216
  Receipt Date: 20141216
  Transmission Date: 20150529
  Serious: No
  Sender: FDA-Public Use
  Company Number: US-B.I. PHARMACEUTICALS,INC./RIDGEFIELD-2014-BI-59457BP

PATIENT
  Age: 21 Year
  Sex: Male

DRUGS (2)
  1. ZANTAC [Suspect]
     Active Substance: RANITIDINE HYDROCHLORIDE
     Indication: GASTROOESOPHAGEAL REFLUX DISEASE
     Dosage: 75 MG
     Route: 048
     Dates: start: 201411
  2. PROAIR HFA [Concomitant]
     Active Substance: ALBUTEROL SULFATE
     Indication: ASTHMA
     Dosage: FORMULATION: INHALATION AEROSOL
     Route: 055

REACTIONS (3)
  - Intentional product misuse [Unknown]
  - Product quality issue [Unknown]
  - Glossodynia [Unknown]

NARRATIVE: CASE EVENT DATE: 201411
